FAERS Safety Report 7712120 (Version 4)
Quarter: 2013Q4

REPORT INFORMATION
  Report Type: Spontaneous
  Country: CN (occurrence: None)
  Receive Date: 20101119
  Receipt Date: 20131108
  Transmission Date: 20140711
  Serious: Yes (Hospitalization)
  Sender: FDA-Public Use
  Company Number: CN-JNJFOC-20101102416

PATIENT
  Age: 55 Year
  Sex: Male
  Weight: 67 kg

DRUGS (1)
  1. DECITABINE [Suspect]
     Indication: MYELODYSPLASTIC SYNDROME
     Dosage: 35 MG, IN 1 DAY; INTRAVENOUS
     Route: 042
     Dates: start: 20100922, end: 20101104

REACTIONS (14)
  - Enteritis [None]
  - Ileus [None]
  - Abdominal adhesions [None]
  - Asthma [None]
  - Lung infection [None]
  - Oedema [None]
  - Interstitial lung disease [None]
  - Abdominal pain [None]
  - Cough [None]
  - Pyrexia [None]
  - Rales [None]
  - Diarrhoea [None]
  - Pneumonia [None]
  - Pleural effusion [None]
